FAERS Safety Report 5700739-1 (Version None)
Quarter: 2008Q2

REPORT INFORMATION
  Report Type: 
  Country: None (occurrence: None)
  Receive Date: 20080410
  Receipt Date: 20080214
  Transmission Date: 20081010
  Serious: No
  Sender: FDA-Public Use
  Company Number: A0709671A

PATIENT
  Sex: Female

DRUGS (1)
  1. TYKERB [Suspect]
     Indication: BREAST CANCER
     Route: 048
     Dates: start: 20080102

REACTIONS (8)
  - BACK PAIN [None]
  - FEELING ABNORMAL [None]
  - INSOMNIA [None]
  - MILIA [None]
  - MUSCLE SPASMS [None]
  - MUSCLE TIGHTNESS [None]
  - SENSATION OF HEAVINESS [None]
  - SENSATION OF PRESSURE [None]
